FAERS Safety Report 5028696-4 (Version None)
Quarter: 2006Q2

REPORT INFORMATION
  Report Type: 
  Country: None (occurrence: None)
  Receive Date: 20060619
  Receipt Date: 20060606
  Transmission Date: 20061013
  Serious: Yes (Other)
  Sender: FDA-Public Use
  Company Number: FR-JNJFOC-20060401798

PATIENT
  Sex: Male
  Weight: 81 kg

DRUGS (4)
  1. REMINYL [Suspect]
     Route: 048
  2. REMINYL [Suspect]
     Route: 048
  3. REMINYL [Suspect]
     Indication: DEMENTIA ALZHEIMER'S TYPE
     Route: 048
  4. ZOCOR [Concomitant]
     Indication: HYPERCHOLESTEROLAEMIA
     Route: 065

REACTIONS (1)
  - ARTERIAL THROMBOSIS LIMB [None]
